APPROVED DRUG PRODUCT: IGALMI
Active Ingredient: DEXMEDETOMIDINE HYDROCHLORIDE
Strength: EQ 0.12MG BASE
Dosage Form/Route: FILM;BUCCAL, SUBLINGUAL
Application: N215390 | Product #001
Applicant: BIOXCEL THERAPEUTICS INC
Approved: Apr 5, 2022 | RLD: Yes | RS: Yes | Type: RX

PATENTS:
Patent 11998529 | Expires: Jul 17, 2040
Patent 12109196 | Expires: Jul 17, 2040
Patent 12364683 | Expires: Jan 12, 2043
Patent 11998528 | Expires: Jan 12, 2043
Patent 11890272 | Expires: Jul 17, 2040
Patent 11786508 | Expires: Dec 29, 2037
Patent 10792246 | Expires: Jun 26, 2039
Patent 11806334 | Expires: Jan 12, 2043
Patent 11517524 | Expires: Jun 26, 2039
Patent 11497711 | Expires: Jun 26, 2039
Patent 11839604 | Expires: Dec 29, 2037
Patent 11890272 | Expires: Jul 17, 2040
Patent 12090140 | Expires: Jan 12, 2043
Patent 12138247 | Expires: Jan 12, 2043
Patent 11478422 | Expires: Jun 26, 2039

EXCLUSIVITY:
Code: M-82 | Date: Nov 19, 2028